FAERS Safety Report 19625720 (Version 1)
Quarter: 2021Q3

REPORT INFORMATION
  Report Type: Spontaneous
  Country: US (occurrence: US)
  Receive Date: 20210728
  Receipt Date: 20210728
  Transmission Date: 20211014
  Serious: Yes (Hospitalization)
  Sender: FDA-Public Use
  Company Number: US-ROCHE-2878216

PATIENT
  Sex: Male

DRUGS (29)
  1. ACAMPROSATE CALCIUM. [Concomitant]
     Active Substance: ACAMPROSATE CALCIUM
  2. CARVEDILOL. [Concomitant]
     Active Substance: CARVEDILOL
  3. FLUOXETINE [Concomitant]
     Active Substance: FLUOXETINE HYDROCHLORIDE
  4. LAMOTRIGINE. [Concomitant]
     Active Substance: LAMOTRIGINE
  5. METOPROLOL TARTRATE. [Concomitant]
     Active Substance: METOPROLOL TARTRATE
  6. PREDNISONE. [Concomitant]
     Active Substance: PREDNISONE
  7. ROSUVASTATIN. [Concomitant]
     Active Substance: ROSUVASTATIN
  8. TAMSULOSIN [Concomitant]
     Active Substance: TAMSULOSIN
  9. XOLAIR [Suspect]
     Active Substance: OMALIZUMAB
     Indication: ASTHMA
     Dosage: TOTAL DOSE OF 225 MG EVERY 14 DAYS
     Route: 058
     Dates: start: 20190914
  10. XOLAIR [Suspect]
     Active Substance: OMALIZUMAB
  11. ASPIRIN. [Concomitant]
     Active Substance: ASPIRIN
  12. GABAPENTIN. [Concomitant]
     Active Substance: GABAPENTIN
  13. MONTELUKAST [Concomitant]
     Active Substance: MONTELUKAST SODIUM
  14. XOLAIR [Suspect]
     Active Substance: OMALIZUMAB
  15. ALBUTEROL. [Concomitant]
     Active Substance: ALBUTEROL
  16. ATORVASTATIN [Concomitant]
     Active Substance: ATORVASTATIN
  17. PROAIR HFA [Concomitant]
     Active Substance: ALBUTEROL SULFATE
  18. XOLAIR [Suspect]
     Active Substance: OMALIZUMAB
     Dosage: TOTAL DOSE OF 225 MG EVERY 14 DAYS.
     Route: 058
     Dates: start: 20190914
  19. MECLIZINE [Concomitant]
     Active Substance: MECLIZINE HYDROCHLORIDE
  20. XOLAIR [Suspect]
     Active Substance: OMALIZUMAB
  21. ALENDRONATE [Concomitant]
     Active Substance: ALENDRONATE SODIUM
  22. DULOXETINE. [Concomitant]
     Active Substance: DULOXETINE
  23. FLUTICASONE NASAL SPRAY [Concomitant]
     Active Substance: FLUTICASONE
  24. ISOSORBIDE. [Concomitant]
     Active Substance: ISOSORBIDE
  25. TRAZODONE [Concomitant]
     Active Substance: TRAZODONE HYDROCHLORIDE
  26. XOLAIR [Suspect]
     Active Substance: OMALIZUMAB
  27. NALTREXONE [Concomitant]
     Active Substance: NALTREXONE
  28. OMEPRAZOLE. [Concomitant]
     Active Substance: OMEPRAZOLE
  29. WIXELA INHUB [Concomitant]
     Active Substance: FLUTICASONE PROPIONATE\SALMETEROL XINAFOATE

REACTIONS (1)
  - Asthma [Unknown]
